FAERS Safety Report 5590689-6 (Version None)
Quarter: 2008Q1

REPORT INFORMATION
  Report Type: 
  Country: None (occurrence: None)
  Receive Date: 20080114
  Receipt Date: 20080104
  Transmission Date: 20080703
  Serious: Yes (Other)
  Sender: FDA-Public Use
  Company Number: US-PFIZER INC-2005163724

PATIENT
  Sex: Female
  Weight: 66.7 kg

DRUGS (12)
  1. ZOLOFT [Suspect]
     Indication: SCHIZOAFFECTIVE DISORDER
     Route: 048
     Dates: start: 20050701, end: 20051001
  2. CHANTIX [Suspect]
     Indication: EX-SMOKER
  3. LEXAPRO [Concomitant]
     Route: 065
  4. NEXIUM [Concomitant]
     Route: 065
  5. HALDOL [Concomitant]
     Route: 065
  6. TOPAMAX [Concomitant]
  7. ZOLPIDEM [Concomitant]
  8. HYDROXYZINE [Concomitant]
  9. LORAZEPAM [Concomitant]
  10. TRAMADOL HCL [Concomitant]
  11. ARTANE [Concomitant]
  12. COGENTIN [Concomitant]

REACTIONS (9)
  - ABDOMINAL PAIN UPPER [None]
  - CHOLECYSTECTOMY [None]
  - ENDOMETRIOSIS [None]
  - JOINT DISLOCATION [None]
  - MANIA [None]
  - MIGRAINE [None]
  - OVARIAN CYST [None]
  - PRE-ECLAMPSIA [None]
  - VOMITING [None]
